FAERS Safety Report 5119154-7 (Version None)
Quarter: 2006Q3

REPORT INFORMATION
  Report Type: 
  Country: None (occurrence: None)
  Receive Date: 20060929
  Receipt Date: 20060929
  Transmission Date: 20061208
  Serious: Yes (Death)
  Sender: FDA-Public Use
  Company Number: None

PATIENT
  Sex: Male
  Weight: 99.3377 kg

DRUGS (1)
  1. LISINOPRIL [Suspect]
     Indication: HYPERTENSION

REACTIONS (15)
  - ANGIONEUROTIC OEDEMA [None]
  - BLOOD PRESSURE SYSTOLIC INCREASED [None]
  - BODY TEMPERATURE INCREASED [None]
  - BRADYCARDIA [None]
  - CHRONIC OBSTRUCTIVE PULMONARY DISEASE [None]
  - DYSPHONIA [None]
  - ELECTROMECHANICAL DISSOCIATION [None]
  - EPIGLOTTITIS [None]
  - ODYNOPHAGIA [None]
  - PERITONSILLAR ABSCESS [None]
  - RESPIRATORY ARREST [None]
  - RESPIRATORY RATE INCREASED [None]
  - RETROPHARYNGEAL ABSCESS [None]
  - RHONCHI [None]
  - VENTRICULAR FIBRILLATION [None]
